FAERS Safety Report 4482074-5 (Version None)
Quarter: 2004Q4

REPORT INFORMATION
  Report Type: 
  Country: None (occurrence: None)
  Receive Date: 20041020
  Receipt Date: 20041001
  Transmission Date: 20050328
  Serious: Yes (Other)
  Sender: FDA-Public Use
  Company Number: CA_041007309

PATIENT
  Age: 59 Year
  Sex: Female

DRUGS (1)
  1. GEMZAR [Suspect]
     Dosage: 500 MG/M2 OTHER

REACTIONS (1)
  - CARDIOTOXICITY [None]
